FAERS Safety Report 9613548 (Version 1)
Quarter: 2013Q4

REPORT INFORMATION
  Report Type: Report from Study
  Country: US (occurrence: US)
  Receive Date: 20131010
  Receipt Date: 20131010
  Transmission Date: 20140711
  Serious: Yes (Other)
  Sender: FDA-Public Use
  Company Number: US-TEVA-436097USA

PATIENT
  Age: 50 Year
  Sex: Female
  Weight: 63.56 kg

DRUGS (6)
  1. COPAXONE [Suspect]
     Indication: RELAPSING-REMITTING MULTIPLE SCLEROSIS
     Dosage: 10 MILLIGRAM DAILY;
     Dates: start: 200411
  2. ZYRTEC [Concomitant]
  3. PATANOL [Concomitant]
  4. ALBUTEROL [Concomitant]
  5. BACLOFEN [Concomitant]
     Indication: MUSCLE RELAXANT THERAPY
  6. ASMANEX [Concomitant]

REACTIONS (1)
  - Glomerulonephritis acute [Not Recovered/Not Resolved]
